FAERS Safety Report 13019660 (Version 6)
Quarter: 2018Q2

REPORT INFORMATION
  Report Type: Spontaneous
  Country: US (occurrence: US)
  Receive Date: 20161212
  Receipt Date: 20180511
  Transmission Date: 20180711
  Serious: Yes (Other)
  Sender: FDA-Public Use
  Company Number: US-ROCHE-1801687

PATIENT
  Age: 63 Year
  Sex: Female
  Weight: 102.15 kg

DRUGS (14)
  1. ACTEMRA [Suspect]
     Active Substance: TOCILIZUMAB
     Route: 058
  2. FOLIC ACID. [Concomitant]
     Active Substance: FOLIC ACID
     Route: 048
     Dates: start: 20160509
  3. HCTZ [Concomitant]
     Active Substance: HYDROCHLOROTHIAZIDE
  4. ATORVASTATIN [Concomitant]
     Active Substance: ATORVASTATIN
     Route: 048
     Dates: start: 20160509
  5. ACTEMRA [Suspect]
     Active Substance: TOCILIZUMAB
     Dosage: 162MG/0.9ML
     Route: 058
     Dates: start: 20170413
  6. IBUPROFEN. [Concomitant]
     Active Substance: IBUPROFEN
  7. ACTEMRA [Suspect]
     Active Substance: TOCILIZUMAB
     Indication: RHEUMATOID ARTHRITIS
     Route: 058
     Dates: start: 20160510
  8. ACTEMRA [Suspect]
     Active Substance: TOCILIZUMAB
     Dosage: INJ 162MG/0.9ML PFS
     Route: 058
     Dates: start: 20161027
  9. METFORMIN HYDROCHLORIDE. [Concomitant]
     Active Substance: METFORMIN HYDROCHLORIDE
     Indication: TYPE 2 DIABETES MELLITUS
     Route: 048
     Dates: start: 20160509
  10. ATORVASTATIN CALCIUM. [Concomitant]
     Active Substance: ATORVASTATIN CALCIUM
  11. ATENOLOL. [Concomitant]
     Active Substance: ATENOLOL
     Route: 048
     Dates: start: 20160509
  12. LOSARTAN. [Concomitant]
     Active Substance: LOSARTAN
  13. PREDNISONE. [Concomitant]
     Active Substance: PREDNISONE
  14. NITROFURANTOIN. [Concomitant]
     Active Substance: NITROFURANTOIN
     Route: 048
     Dates: start: 20161206

REACTIONS (9)
  - Neuropathy peripheral [Recovering/Resolving]
  - Nasopharyngitis [Unknown]
  - Hypoaesthesia [Recovering/Resolving]
  - Urinary tract infection [Unknown]
  - Urinary tract infection [Recovering/Resolving]
  - Chills [Unknown]
  - Pain in extremity [Not Recovered/Not Resolved]
  - Pain in extremity [Unknown]
  - Paraesthesia [Recovering/Resolving]

NARRATIVE: CASE EVENT DATE: 20170312
